FAERS Safety Report 21080239 (Version 1)
Quarter: 2022Q3

REPORT INFORMATION
  Report Type: Report from Study
  Country: CA (occurrence: CA)
  Receive Date: 20220714
  Receipt Date: 20220714
  Transmission Date: 20221027
  Serious: Yes (Other)
  Sender: FDA-Public Use
  Company Number: CA-CELLTRION INC.-2022CA011080

PATIENT

DRUGS (1)
  1. TRUXIMA [Suspect]
     Active Substance: RITUXIMAB-ABBS
     Indication: Immune thrombocytopenia
     Dosage: 375 MG/M2 WEEKLY X 4 WEEKS (900 MG WEEKLY) (TRUXIMA 500MG X 8 VIALS)

REACTIONS (2)
  - Immune thrombocytopenia [Unknown]
  - Off label use [Unknown]
